FAERS Safety Report 7549096-9 (Version None)
Quarter: 2011Q2

REPORT INFORMATION
  Report Type: 
  Country: None (occurrence: None)
  Receive Date: 20110615
  Receipt Date: 20110607
  Transmission Date: 20111010
  Serious: Yes (Hospitalization, Other)
  Sender: FDA-Public Use
  Company Number: CA-PFIZER INC-2011061226

PATIENT
  Age: 64 Year
  Sex: Male
  Weight: 103 kg

DRUGS (64)
  1. DOMPERIDONE [Concomitant]
     Indication: GASTROINTESTINAL MOTILITY DISORDER
     Dosage: 10 MG, 3X/DAY
  2. PROPRANOLOL [Concomitant]
     Indication: DEPRESSION
     Dosage: 20 MG, 1X/DAY
  3. VITAMIN B1 TAB [Concomitant]
     Indication: PROPHYLAXIS
     Dosage: 7 MG, 3X/DAY (WITH MEALS)
  4. VITAMIN B-12 [Concomitant]
     Indication: PROPHYLAXIS
     Dosage: 7 MG, 3X/DAY (WITH MEALS)
  5. NIACIN [Concomitant]
     Indication: PROPHYLAXIS
     Dosage: 10 MG, 3X/DAY (WITH MEALS)
  6. FOLIC ACID [Concomitant]
     Indication: PROPHYLAXIS
     Dosage: 250 UG, 3X/DAY (WITH MEALS)
  7. RUTOSIDE [Concomitant]
     Indication: PROPHYLAXIS
     Dosage: 30 MG, 3X/DAY (WITH MEALS)
  8. HESPERIDIN [Concomitant]
     Indication: PROPHYLAXIS
     Dosage: 6 MG, 3X/DAY (WITH MEALS)
  9. CALCIUM [Concomitant]
     Indication: PROPHYLAXIS
     Dosage: 70 MG, 3X/DAY (WITH MEALS)
  10. MAGNESIUM [Concomitant]
     Indication: PROPHYLAXIS
     Dosage: 75 MG, 3X/DAY (WITH MEALS)
  11. PANTOPRAZOLE [Concomitant]
     Indication: HIATUS HERNIA
     Dosage: 40 MG, 1X/DAY
  12. SAW PALMETTO [Concomitant]
     Indication: PROPHYLAXIS
     Dosage: 320 MG, ALTERNATE DAY
  13. ALPHA LIPOIC ACID [Concomitant]
     Indication: PROPHYLAXIS
     Dosage: 12.5 MG, ALTERNATE DAY
  14. ACETYLCYSTEINE [Concomitant]
     Indication: PROPHYLAXIS
     Dosage: 25 MG, 3X/DAY (WITH MEALS)
  15. BROMELAINS [Concomitant]
     Indication: PROPHYLAXIS
     Dosage: 12.5 MG, 3X/DAY (WITH MEALS)
  16. SILICA [Concomitant]
     Indication: PROPHYLAXIS
     Dosage: 1 MG, 3X/DAY (WITH MEALS)
  17. COZAAR [Concomitant]
     Indication: BLOOD PRESSURE
  18. CELEBREX [Concomitant]
     Indication: ARTHRITIS
     Dosage: 200 MG, 1X/DAY
  19. REQUIP [Concomitant]
     Indication: RESTLESS LEGS SYNDROME
     Dosage: 0.25 MG, 1X/DAY
  20. GLUCOSAMINE HYDROCHLORIDE/CHONDROITIN SULFATE [Concomitant]
     Indication: ARTHRITIS
     Dosage: GLUCOSAMINE 750MG/ CHONDROITIN SULFATE 600MG, 1X/DAY
  21. VITAMIN D [Concomitant]
     Indication: PROPHYLAXIS
     Dosage: 200 IU, 3X/DAY (WITH MEALS)
  22. VITAMIN B-12 [Concomitant]
     Indication: PROPHYLAXIS
     Dosage: 50 UG, 3X/DAY (WITH MEALS)
  23. BIOTIN [Concomitant]
     Indication: PROPHYLAXIS
     Dosage: 75 UG, 3X/DAY (WITH MEALS)
  24. PANTOTHENIC ACID [Concomitant]
     Indication: PROPHYLAXIS
     Dosage: 25 MG, 3X/DAY (WITH MEALS)
  25. GREEN TEA EXTRACT [Concomitant]
     Indication: PROPHYLAXIS
     Dosage: 4 MG, 3X/DAY (WITH MEALS)
  26. COPPER [Concomitant]
     Indication: PROPHYLAXIS
     Dosage: 0.5 MG, 3X/DAY (WITH MEALS)
  27. MOLYBDENUM [Concomitant]
     Indication: PROPHYLAXIS
     Dosage: 12.5 UG, 3X/DAY (WITH MEALS)
  28. DAPSONE [Suspect]
     Indication: DERMATITIS HERPETIFORMIS
     Dosage: 100 MG, 1X/DAY
  29. IMOVANE [Concomitant]
     Indication: SLEEP DISORDER
     Dosage: 7.5 MG, AS NEEDED (OCCASIONAL, MAYBE ONCE OR TWICE A MONTH)
  30. SEROQUEL [Concomitant]
     Indication: DEPRESSION
     Dosage: 100 MG, 1X/DAY
  31. POMEGRANATE [Concomitant]
     Indication: PROPHYLAXIS
     Dosage: 2.5 MG, 3X/DAY (WITH MEALS)
  32. LUTEIN [Concomitant]
     Indication: PROPHYLAXIS
     Dosage: 150 UG, 3X/DAY (WITH MEALS)
  33. LYCOPENE [Concomitant]
     Indication: PROPHYLAXIS
     Dosage: 250 UG, 3X/DAY (WITH MEALS)
  34. IODINE [Concomitant]
     Indication: PROPHYLAXIS
     Dosage: 75 UG, 3X/DAY (WITH MEALS)
  35. MANGANESE [Concomitant]
     Indication: PROPHYLAXIS
     Dosage: 1.25 MG, 3X/DAY (WITH MEALS)
  36. FERROUS FUMARATE [Concomitant]
     Indication: ANAEMIA
     Dosage: 300 MG, UNK
  37. NEURONTIN [Concomitant]
     Indication: DEPRESSION
     Dosage: 400 MG, 1X/DAY
  38. VENLAFAXINE [Concomitant]
     Indication: DEPRESSION
     Dosage: 300 MG (2 X 150MG), 1X/DAY
  39. COENZYME Q10 [Concomitant]
     Dosage: 30 MG, ALTERNATE DAY
  40. ASCORBIC ACID [Concomitant]
     Dosage: 100 MG, 4X/DAY
  41. VITAMIN K TAB [Concomitant]
     Indication: PROPHYLAXIS
     Dosage: 15 UG, 3X/DAY (WITH MEALS)
  42. CHOLINE BITARTRATE [Concomitant]
     Indication: PROPHYLAXIS
     Dosage: 25 MG, 3X/DAY (WITH MEALS)
  43. ALPHA LIPOIC ACID [Concomitant]
     Dosage: 5 MG, 3X/DAY (WITH MEALS)
  44. CHROMIUM [Concomitant]
     Indication: PROPHYLAXIS
     Dosage: 75 UG, 3X/DAY (WITH MEALS)
  45. COZAAR [Concomitant]
     Indication: BLOOD CHOLESTEROL
     Dosage: 50 MG, 1X/DAY
  46. LITHIUM CARBONATE [Concomitant]
     Indication: DEPRESSION
     Dosage: 600 MG (2 X 300MG), 2X/DAY
  47. COENZYME Q10 [Concomitant]
     Dosage: 3 MG, 3X/DAY (WITH MEALS)
  48. CINNAMON [Concomitant]
     Indication: PROPHYLAXIS
     Dosage: 1 MG, 3X/DAY (WITH MEALS)
  49. INOSITOL [Concomitant]
     Indication: PROPHYLAXIS
     Dosage: 37.5 MG, 3X/DAY (WITH MEALS)
  50. ZINC [Concomitant]
     Indication: PROPHYLAXIS
     Dosage: 5 MG, 3X/DAY (WITH MEALS)
  51. SELENIUM [Concomitant]
     Indication: PROPHYLAXIS
     Dosage: 50 UG, 3X/DAY (WITH MEALS)
  52. LIPITOR [Suspect]
     Indication: BLOOD CHOLESTEROL
     Dosage: 10 MG, 1X/DAY
     Dates: end: 20101019
  53. ADDERALL 10 [Concomitant]
     Indication: DEPRESSION
     Dosage: 20 MG, 1X/DAY
  54. SEROQUEL [Concomitant]
     Dosage: 25 MG, AS NEEDED MAYBE ONCE A WEEK)
  55. BETACAROTENE [Concomitant]
     Indication: PROPHYLAXIS
     Dosage: 1.5 MG, 3X/DAY (WITH MEALS)
  56. VITAMIN E [Concomitant]
     Indication: PROPHYLAXIS
     Dosage: 100 IU, 3X/DAY (WITH MEALS)
  57. VITAMIN B6 [Concomitant]
     Indication: PROPHYLAXIS
     Dosage: 8 MG, 3X/DAY (WITH MEALS)
  58. LIPITOR [Suspect]
     Indication: BLOOD PRESSURE
  59. CLINDAMYCIN HYDROCHLORIDE [Concomitant]
     Indication: SINUS DISORDER
     Dosage: UNK
     Dates: start: 20091001
  60. VENLAFAXINE [Concomitant]
     Dosage: 75 MG, 1X/DAY
  61. ASCORBIC ACID [Concomitant]
     Dosage: 325 MG, 3X/DAY (WITH MEALS)
  62. GRAPE SEED EXTRACT [Concomitant]
     Indication: PROPHYLAXIS
     Dosage: 30 MG, 1X/DAY
  63. QUERCETIN [Concomitant]
     Indication: PROPHYLAXIS
     Dosage: 6 MG, 3X/DAY (WITH MEALS)
  64. BILBERRY [Concomitant]
     Indication: PROPHYLAXIS
     Dosage: 250 UG, 3X/DAY (WITH MEALS)

REACTIONS (54)
  - LOSS OF CONSCIOUSNESS [None]
  - SENSORY LOSS [None]
  - HYPERHIDROSIS [None]
  - FEELING ABNORMAL [None]
  - ABDOMINAL PAIN [None]
  - IRREGULAR SLEEP PHASE [None]
  - ANXIETY [None]
  - ERYTHEMA [None]
  - MOOD SWINGS [None]
  - SINUSITIS [None]
  - PERONEAL NERVE PALSY [None]
  - RASH GENERALISED [None]
  - AREFLEXIA [None]
  - CHROMATURIA [None]
  - SKIN EXFOLIATION [None]
  - SKIN WARM [None]
  - NEUROPATHY PERIPHERAL [None]
  - TREMOR [None]
  - TENDON INJURY [None]
  - NAUSEA [None]
  - SOMATOSENSORY EVOKED POTENTIALS ABNORMAL [None]
  - HEPATIC PAIN [None]
  - SKIN FISSURES [None]
  - FATIGUE [None]
  - DEPRESSION [None]
  - CLOSTRIDIAL INFECTION [None]
  - ARTHRALGIA [None]
  - BODY TEMPERATURE DECREASED [None]
  - RED BLOOD CELL COUNT DECREASED [None]
  - ERECTILE DYSFUNCTION [None]
  - INSOMNIA [None]
  - MUSCULOSKELETAL STIFFNESS [None]
  - VERTIGO [None]
  - BALANCE DISORDER [None]
  - DISINHIBITION [None]
  - PANIC ATTACK [None]
  - SUICIDAL IDEATION [None]
  - THIRST [None]
  - FAECAL INCONTINENCE [None]
  - PARAESTHESIA [None]
  - LETHARGY [None]
  - MUSCLE ATROPHY [None]
  - SLOW RESPONSE TO STIMULI [None]
  - OEDEMA PERIPHERAL [None]
  - POLYNEUROPATHY [None]
  - NASAL ODOUR [None]
  - DENTAL CARIES [None]
  - PAIN IN EXTREMITY [None]
  - MUSCLE SPASMS [None]
  - DRUG WITHDRAWAL SYNDROME [None]
  - MUSCLE TWITCHING [None]
  - TENDERNESS [None]
  - DRY EYE [None]
  - DIZZINESS [None]
